FAERS Safety Report 9194767 (Version 1)
Quarter: 2013Q1

REPORT INFORMATION
  Report Type: Spontaneous
  Country: US (occurrence: US)
  Receive Date: 20130328
  Receipt Date: 20130328
  Transmission Date: 20140127
  Serious: No
  Sender: FDA-Public Use
  Company Number: US-ALLERGAN-1209772US

PATIENT
  Age: 47 Year
  Sex: Female

DRUGS (3)
  1. LATISSE 0.03% [Suspect]
     Indication: GROWTH OF EYELASHES
     Dosage: 2 GTT, QHS
     Route: 061
     Dates: start: 20120608
  2. BAUSCH AND LOMB EYE WASH [Concomitant]
     Indication: PRODUCT USED FOR UNKNOWN INDICATION
     Dosage: UNK, PRN
  3. BAUSCH AND LOMB EYE DROPS [Concomitant]
     Indication: DRY EYE
     Dosage: UNK, PRN

REACTIONS (5)
  - Incorrect storage of drug [Unknown]
  - Wrong technique in drug usage process [Unknown]
  - Eyelids pruritus [Not Recovered/Not Resolved]
  - Drug ineffective [Unknown]
  - Eye pruritus [Not Recovered/Not Resolved]
